FAERS Safety Report 12776774 (Version 1)
Quarter: 2016Q3

REPORT INFORMATION
  Report Type: Spontaneous
  Country: AU (occurrence: AU)
  Receive Date: 20160923
  Receipt Date: 20160923
  Transmission Date: 20161109
  Serious: Yes (Hospitalization)
  Sender: FDA-Public Use
  Company Number: AU-SA-2016SA171778

PATIENT
  Age: 36 Year
  Sex: Female

DRUGS (2)
  1. DOCETAXEL. [Suspect]
     Active Substance: DOCETAXEL
     Dosage: 10 MLS INFUSION OF 3#TAXOTERE
     Route: 042
     Dates: start: 20160512, end: 20160512
  2. DOCETAXEL. [Suspect]
     Active Substance: DOCETAXEL
     Dosage: 10 MLS INTO INFUSION OF #3 TAXOTERE
     Route: 042
     Dates: start: 20160512, end: 20160512

REACTIONS (5)
  - Throat irritation [Recovered/Resolved]
  - Pharyngeal paraesthesia [Recovered/Resolved]
  - Back pain [Recovered/Resolved]
  - Flushing [Recovered/Resolved]
  - Chest discomfort [Recovered/Resolved]

NARRATIVE: CASE EVENT DATE: 20160512
